FAERS Safety Report 9258234 (Version 1)
Quarter: 2013Q2

REPORT INFORMATION
  Report Type: Spontaneous
  Country: US (occurrence: US)
  Receive Date: 20130426
  Receipt Date: 20130426
  Transmission Date: 20140414
  Serious: Yes (Other)
  Sender: FDA-Public Use
  Company Number: US-PFIZER INC-2013128030

PATIENT
  Sex: Female

DRUGS (4)
  1. TIKOSYN [Suspect]
     Dosage: UNK
     Dates: start: 201201
  2. ZOLOFT [Suspect]
     Indication: DEPRESSION
     Dosage: UNK
  3. SYNTHROID [Concomitant]
     Dosage: UNK
  4. ASPIRIN [Concomitant]
     Dosage: UNK

REACTIONS (6)
  - Self injurious behaviour [Unknown]
  - Haemorrhage [Unknown]
  - Headache [Unknown]
  - Depression [Unknown]
  - Fatigue [Unknown]
  - Decreased appetite [Unknown]
